FAERS Safety Report 25818039 (Version 1)
Quarter: 2025Q3

REPORT INFORMATION
  Report Type: Report from Study
  Country: BH (occurrence: BH)
  Receive Date: 20250918
  Receipt Date: 20250918
  Transmission Date: 20251020
  Serious: Yes (Other)
  Sender: RANBAXY
  Company Number: BH-SUN PHARMACEUTICAL INDUSTRIES LTD-2025RR-527671

PATIENT
  Age: 28 Year
  Sex: Female

DRUGS (6)
  1. TERBINAFINE [Suspect]
     Active Substance: TERBINAFINE
     Indication: Tinea cruris
     Dates: start: 201809, end: 202109
  2. ISOTRETINOIN [Suspect]
     Active Substance: ISOTRETINOIN
     Indication: Tinea cruris
     Dosage: 20 MILLIGRAM, DAILY
     Route: 048
     Dates: start: 202204
  3. ITRACONAZOLE [Suspect]
     Active Substance: ITRACONAZOLE
     Indication: Tinea cruris
     Dosage: 200 MILLIGRAM, BID
     Route: 048
  4. ITRACONAZOLE [Suspect]
     Active Substance: ITRACONAZOLE
     Dosage: 200 MILLIGRAM, BID
     Route: 048
  5. VORICONAZOLE [Suspect]
     Active Substance: VORICONAZOLE
     Indication: Tinea cruris
     Route: 065
     Dates: start: 201809, end: 202109
  6. GRISEOFULVIN [Suspect]
     Active Substance: GRISEOFULVIN
     Indication: Tinea cruris
     Dosage: 500 MILLIGRAM, BID
     Route: 048
     Dates: start: 202203

REACTIONS (3)
  - Off label use [Recovered/Resolved]
  - Drug ineffective [Recovered/Resolved]
  - Therapeutic product effect incomplete [Recovered/Resolved]
